FAERS Safety Report 4573602-X (Version None)
Quarter: 2005Q1

REPORT INFORMATION
  Report Type: 
  Country: None (occurrence: None)
  Receive Date: 20050203
  Receipt Date: 20050125
  Transmission Date: 20050727
  Serious: Yes (Hospitalization)
  Sender: FDA-Public Use
  Company Number: 2004-12-1272

PATIENT
  Age: 83 Year
  Sex: Male

DRUGS (4)
  1. FLUTAMIDE [Suspect]
     Indication: PROSTATE CANCER STAGE IV
     Dosage: 375 MG QD ORAL
     Route: 048
     Dates: start: 20041005
  2. LOSARTAN POTASSIUM [Concomitant]
  3. TAMSULOSIN HYDROCHLORIDE [Concomitant]
  4. URSODEOXYCHOLIC ACID [Concomitant]

REACTIONS (3)
  - ANGINA PECTORIS [None]
  - DYSPNOEA [None]
  - ELECTROCARDIOGRAM ST SEGMENT DEPRESSION [None]
